FAERS Safety Report 21206636 (Version 2)
Quarter: 2022Q3

REPORT INFORMATION
  Report Type: Spontaneous
  Country: DE (occurrence: DE)
  Receive Date: 20220812
  Receipt Date: 20220927
  Transmission Date: 20221027
  Serious: Yes (Death, Other)
  Sender: FDA-Public Use
  Company Number: DE-VELOXIS PHARMACEUTICALS-2022VELDE-000538

PATIENT
  Age: 60 Year
  Sex: Male

DRUGS (9)
  1. TACROLIMUS [Suspect]
     Active Substance: TACROLIMUS
     Indication: Prophylaxis against graft versus host disease
     Dosage: UNK
  2. FLUDARABINE [Suspect]
     Active Substance: FLUDARABINE PHOSPHATE
     Indication: Acute myeloid leukaemia
     Dosage: UNK
  3. THIOTEPA [Suspect]
     Active Substance: THIOTEPA
     Indication: Acute myeloid leukaemia
     Dosage: UNK
  4. MYCOPHENOLATE MOFETIL [Suspect]
     Active Substance: MYCOPHENOLATE MOFETIL
     Indication: Prophylaxis against graft versus host disease
     Dosage: UNK
  5. TREOSULFAN [Suspect]
     Active Substance: TREOSULFAN
     Indication: Acute myeloid leukaemia
     Dosage: UNK
  6. URSODIOL [Suspect]
     Active Substance: URSODIOL
     Indication: Acute myeloid leukaemia
     Dosage: UNK
  7. BUSULFAN [Suspect]
     Active Substance: BUSULFAN
     Indication: Acute myeloid leukaemia
     Dosage: UNK
  8. MELPHALAN [Suspect]
     Active Substance: MELPHALAN
     Indication: Acute myeloid leukaemia
     Dosage: UNK
  9. CYCLOPHOSPHAMIDE [Suspect]
     Active Substance: CYCLOPHOSPHAMIDE
     Indication: Prophylaxis against graft versus host disease
     Dosage: UNK

REACTIONS (8)
  - Hepatic failure [Fatal]
  - Ascites [Unknown]
  - Pericardial effusion [Unknown]
  - Respiratory failure [Unknown]
  - Acute kidney injury [Unknown]
  - Device related bacteraemia [Unknown]
  - Product use in unapproved indication [Unknown]
  - Off label use [Unknown]
